FAERS Safety Report 6520149-7 (Version None)
Quarter: 2009Q4

REPORT INFORMATION
  Report Type: 
  Country: None (occurrence: None)
  Receive Date: 20091229
  Receipt Date: 20091218
  Transmission Date: 20100525
  Serious: Yes (Life-Threatening, Other)
  Sender: FDA-Public Use
  Company Number: JP-PFIZER INC-2009304295

PATIENT
  Age: 56 Year
  Sex: Male

DRUGS (7)
  1. LIPITOR [Suspect]
     Indication: HYPERLIPIDAEMIA
     Dosage: 40 MG, 1X/DAY
     Route: 048
     Dates: start: 20060101, end: 20091101
  2. GABAPEN [Suspect]
     Indication: HERNIA PAIN
     Dosage: 900 MG/DAY
     Route: 048
     Dates: start: 20090401, end: 20091101
  3. ROHYPNOL [Concomitant]
     Dosage: 8 MG, 1X/DAY
     Route: 048
     Dates: start: 20060101, end: 20091101
  4. MORPHINE HYDROCHLORIDE [Concomitant]
     Dosage: 1400 MG, UNK
     Route: 048
     Dates: start: 20060101, end: 20091101
  5. MORPHINE HYDROCHLORIDE [Concomitant]
     Dosage: 1400 MG, DAILY
     Dates: end: 20081101
  6. MAGNESIUM OXIDE [Concomitant]
     Route: 048
     Dates: end: 20091101
  7. PURSENNID [Concomitant]
     Route: 048
     Dates: end: 20091101

REACTIONS (5)
  - FALL [None]
  - LOSS OF CONSCIOUSNESS [None]
  - NEUROLEPTIC MALIGNANT SYNDROME [None]
  - RHABDOMYOLYSIS [None]
  - SOMNOLENCE [None]
